FAERS Safety Report 6153927-7 (Version None)
Quarter: 2009Q2

REPORT INFORMATION
  Report Type: 
  Country: None (occurrence: None)
  Receive Date: 20090409
  Receipt Date: 20090409
  Transmission Date: 20091009
  Serious: Yes (Hospitalization)
  Sender: FDA-Public Use
  Company Number: None

PATIENT
  Sex: Male
  Weight: 9.3 kg

DRUGS (15)
  1. CYCLOPHOSPHAMIDE [Suspect]
     Dosage: 1598 MG
  2. NEULASTA [Suspect]
     Dosage: 6 MG
  3. PREDNISONE [Suspect]
     Dosage: 400 MG
  4. RITUXIMAB (MOAB C2B8 ANTI CD20, CHIMERIC) [Suspect]
     Dosage: 799 MG
  5. VINCRISTINE SULFATE [Suspect]
     Dosage: 2 MG
  6. PEPCID [Concomitant]
  7. FONDAPARINUX [Concomitant]
  8. METOPROLOL TARTRATE [Concomitant]
  9. MOXIFLOXACIN HCL [Concomitant]
  10. ONDANSETRON [Concomitant]
  11. PREDNISONE [Concomitant]
  12. PROPOXYPHENE HCL CAP [Concomitant]
  13. SENOKOT [Concomitant]
  14. SIMETHICONE [Concomitant]
  15. VALTREX [Concomitant]

REACTIONS (2)
  - GASTROINTESTINAL HAEMORRHAGE [None]
  - HAEMATEMESIS [None]
